FAERS Safety Report 16822903 (Version 1)
Quarter: 2019Q3

REPORT INFORMATION
  Report Type: Spontaneous
  Country: HR (occurrence: HR)
  Receive Date: 20190918
  Receipt Date: 20190918
  Transmission Date: 20191005
  Serious: Yes (Life-Threatening, Other)
  Sender: FDA-Public Use
  Company Number: HR-PFIZER INC-2019375557

PATIENT
  Sex: Female

DRUGS (2)
  1. SUCCINYLCHOLINE CHLORIDE. [Suspect]
     Active Substance: SUCCINYLCHOLINE CHLORIDE
     Dosage: 100 MG, UNK
     Route: 042
  2. THIOPENTAL [Concomitant]
     Active Substance: THIOPENTAL
     Dosage: 350 MG, UNK

REACTIONS (13)
  - Cardiac failure [Unknown]
  - Laryngospasm [Unknown]
  - Hypersensitivity [Unknown]
  - Cyanosis [Unknown]
  - Heart rate increased [Unknown]
  - Blood pressure decreased [Unknown]
  - Dyspnoea [Unknown]
  - Bronchospasm [Unknown]
  - Obstetrical pulmonary embolism [Unknown]
  - Face oedema [Unknown]
  - Respiratory failure [Unknown]
  - Oxygen saturation decreased [Unknown]
  - Tongue oedema [Unknown]
